FAERS Safety Report 8583435-5 (Version None)
Quarter: 2012Q3

REPORT INFORMATION
  Report Type: 
  Country: None (occurrence: None)
  Receive Date: 20120809
  Receipt Date: 20120601
  Transmission Date: 20120928
  Serious: Yes (Other)
  Sender: FDA-Public Use
  Company Number: GB-BAXTER-2012BAX006834

PATIENT
  Sex: Male

DRUGS (2)
  1. EXTRANEAL [Suspect]
     Indication: PERITONEAL DIALYSIS
     Route: 033
  2. FLUCLOXACILLIN [Concomitant]
     Indication: STAPHYLOCOCCAL INFECTION
     Route: 065
     Dates: start: 20120523

REACTIONS (2)
  - CATHETER SITE INFECTION [None]
  - STAPHYLOCOCCAL INFECTION [None]
